FAERS Safety Report 7509805-1 (Version None)
Quarter: 2011Q2

REPORT INFORMATION
  Report Type: 
  Country: None (occurrence: None)
  Receive Date: 20110527
  Receipt Date: 20110520
  Transmission Date: 20111010
  Serious: Yes (Life-Threatening)
  Sender: FDA-Public Use
  Company Number: A0863214B

PATIENT
  Age: 40 Year
  Sex: Female
  Weight: 65.5 kg

DRUGS (32)
  1. TRASTUZUMAB [Suspect]
     Indication: BREAST CANCER
     Dosage: 4MGK WEEKLY
     Route: 042
     Dates: start: 20100415
  2. COMPAZINE [Concomitant]
     Indication: NAUSEA
     Dosage: 10MG AS REQUIRED
     Route: 048
     Dates: start: 20100415
  3. SUCRALFATE [Concomitant]
     Indication: ILL-DEFINED DISORDER
     Dosage: 1G FOUR TIMES PER DAY
     Route: 048
     Dates: start: 20100422
  4. BENADRYL [Concomitant]
     Dosage: 25MG SINGLE DOSE
     Route: 042
     Dates: start: 20100514, end: 20100514
  5. FAMOTIDINE [Concomitant]
     Dosage: 20MG SINGLE DOSE
     Route: 042
     Dates: start: 20100514, end: 20100514
  6. LAPATINIB [Suspect]
     Indication: BREAST CANCER
     Dosage: 750MG PER DAY
     Route: 048
     Dates: start: 20100415
  7. FAMOTIDINE [Concomitant]
     Indication: PREMEDICATION
     Route: 042
     Dates: start: 20100415
  8. MAGIC MOUTHWASH [Concomitant]
     Dosage: 15ML AS REQUIRED
     Route: 061
     Dates: start: 20100422
  9. KYTRIL [Concomitant]
     Dosage: 1000MCG SINGLE DOSE
     Route: 042
     Dates: start: 20100514, end: 20100514
  10. LOMOTIL [Concomitant]
     Dosage: 2TAB AS REQUIRED
     Route: 048
     Dates: start: 20100415
  11. PRILOSEC [Concomitant]
     Indication: ILL-DEFINED DISORDER
     Dosage: 40MG PER DAY
     Route: 048
     Dates: start: 20100422
  12. GENERAL ANESTHESIA [Concomitant]
     Indication: CHOLECYSTECTOMY
     Dates: start: 20100603, end: 20100603
  13. DOCETAXEL [Suspect]
     Indication: BREAST CANCER
     Dosage: 75MGM2 CYCLIC
     Route: 042
     Dates: start: 20100415
  14. VICODIN [Concomitant]
     Indication: PAIN
     Dosage: 1TAB AS REQUIRED
     Route: 048
     Dates: start: 20100415
  15. VITAMIN D [Concomitant]
     Indication: SUPPLEMENTATION THERAPY
     Dosage: 1TAB PER DAY
     Route: 048
     Dates: start: 20100407
  16. VITAMIN A [Concomitant]
     Indication: SUPPLEMENTATION THERAPY
     Dosage: 2500MG PER DAY
     Route: 048
     Dates: start: 20100415
  17. EMEND [Concomitant]
     Dosage: 80MG CYCLIC
     Route: 048
     Dates: start: 20100416
  18. BENADRYL [Concomitant]
     Indication: RASH
     Dosage: 25MG AS REQUIRED
     Route: 048
     Dates: start: 20100513
  19. PERCOCET [Concomitant]
     Indication: INCISION SITE PAIN
     Dosage: 2TAB AS REQUIRED
     Route: 048
     Dates: start: 20100603
  20. GCSF [Concomitant]
     Indication: PROPHYLAXIS
     Route: 058
     Dates: start: 20100415
  21. VITAMIN B6 [Concomitant]
     Indication: SUPPLEMENTATION THERAPY
     Dosage: 1TAB PER DAY
     Route: 048
     Dates: start: 20100407
  22. FOLIC ACID [Concomitant]
     Indication: SUPPLEMENTATION THERAPY
     Dosage: 1MG PER DAY
     Route: 048
     Dates: start: 20100415
  23. SOLU-CORTEF [Concomitant]
     Indication: INFUSION RELATED REACTION
     Dosage: 100MG SINGLE DOSE
     Route: 042
     Dates: start: 20100506, end: 20100506
  24. CALCIUM CARBONATE [Concomitant]
     Indication: ILL-DEFINED DISORDER
     Dosage: 3TAB AS REQUIRED
     Route: 048
     Dates: start: 20100513
  25. CARBOPLATIN [Suspect]
     Indication: BREAST CANCER
     Route: 042
     Dates: start: 20100415
  26. ALOXI [Concomitant]
     Indication: PREMEDICATION
     Route: 042
     Dates: start: 20100415
  27. EMEND [Concomitant]
     Route: 042
     Dates: start: 20100415
  28. SODIUM CHLORIDE [Concomitant]
     Dosage: 1000ML SINGLE DOSE
     Route: 042
     Dates: start: 20100514, end: 20100514
  29. LIDOCAINE 1% [Concomitant]
     Dates: start: 20100603, end: 20100603
  30. BENADRYL [Concomitant]
     Indication: PREMEDICATION
     Route: 042
     Dates: start: 20100415, end: 20100415
  31. DECADRON [Concomitant]
     Indication: PREMEDICATION
     Route: 042
     Dates: start: 20100415
  32. BENADRYL [Concomitant]
     Indication: INFUSION RELATED REACTION
     Dosage: 25MG SINGLE DOSE
     Route: 042
     Dates: start: 20100506, end: 20100506

REACTIONS (4)
  - IMPETIGO [None]
  - TOXIC EPIDERMAL NECROLYSIS [None]
  - DERMATITIS CONTACT [None]
  - RASH GENERALISED [None]
